FAERS Safety Report 18385451 (Version 1)
Quarter: 2020Q4

REPORT INFORMATION
  Report Type: Spontaneous
  Country: FR (occurrence: FR)
  Receive Date: 20201015
  Receipt Date: 20201015
  Transmission Date: 20210114
  Serious: Yes (Hospitalization)
  Sender: FDA-Public Use
  Company Number: FR-TEVA-2020-FR-1837759

PATIENT
  Age: 31 Year
  Sex: Female

DRUGS (1)
  1. KETOPROFENE [Suspect]
     Active Substance: KETOPROFEN
     Indication: PAIN
     Dosage: 200 MG
     Route: 048
     Dates: start: 20200724, end: 20200727

REACTIONS (1)
  - Acute kidney injury [Recovering/Resolving]

NARRATIVE: CASE EVENT DATE: 20200731
